FAERS Safety Report 4846133-7 (Version None)
Quarter: 2005Q4

REPORT INFORMATION
  Report Type: 
  Country: None (occurrence: None)
  Receive Date: 20051202
  Receipt Date: 20051202
  Transmission Date: 20060501
  Serious: Yes (Life-Threatening)
  Sender: FDA-Public Use
  Company Number: None

PATIENT
  Sex: Male
  Weight: 111.1313 kg

DRUGS (8)
  1. ENALAPRIL 20 MG AT BEDTIME [Suspect]
     Indication: HYPERTENSION
     Dosage: 20 MG AT BED TIME
     Dates: start: 20040924, end: 20051024
  2. CLONIDINE [Concomitant]
  3. METFORMIN [Concomitant]
  4. ATORVASTATIN CALCIUM [Concomitant]
  5. EZETEMIBE [Concomitant]
  6. METOPROLOL [Concomitant]
  7. HYDROCHLOROTHIAZIDE [Concomitant]
  8. LANSOPRAZOLE [Concomitant]

REACTIONS (3)
  - DYSARTHRIA [None]
  - DYSKINESIA [None]
  - OEDEMA MOUTH [None]
